FAERS Safety Report 24327758 (Version 2)
Quarter: 2024Q4

REPORT INFORMATION
  Report Type: Spontaneous
  Country: US (occurrence: US)
  Receive Date: 20240917
  Receipt Date: 20241004
  Transmission Date: 20250115
  Serious: Yes (Hospitalization)
  Sender: GLENMARK
  Company Number: US-GLENMARK PHARMACEUTICALS-2024GMK093885

PATIENT

DRUGS (5)
  1. OLMESARTAN MEDOXOMIL [Suspect]
     Active Substance: OLMESARTAN MEDOXOMIL
     Indication: Blood pressure increased
     Dosage: 1 DOSAGE FORM, AM (ONCE IN THE MORNING)
     Route: 048
     Dates: end: 20240808
  2. HYDROXYCHLOROQUINE [Concomitant]
     Active Substance: HYDROXYCHLOROQUINE
     Indication: Autoimmune disorder
     Dosage: 1 DOSAGE FORM, QD
     Route: 048
     Dates: start: 202308
  3. PANTOPRAZOLE SODIUM [Concomitant]
     Active Substance: PANTOPRAZOLE SODIUM
     Indication: Gastric pH decreased
     Dosage: 1 DOSAGE FORM, AM
     Route: 048
     Dates: start: 202308
  4. SODIUM BICARBONATE [Concomitant]
     Active Substance: SODIUM BICARBONATE
     Indication: Chronic kidney disease
     Dosage: 3 DOSAGE FORM, QD
     Route: 048
     Dates: start: 202308
  5. PANCREAZE [Concomitant]
     Active Substance: PANCRELIPASE AMYLASE\PANCRELIPASE LIPASE\PANCRELIPASE PROTEASE
     Indication: Digestive enzyme abnormal
     Dosage: 2 DOSAGE FORM (STRENGTH: 37,000 UNITS)
     Route: 048
     Dates: start: 202308

REACTIONS (3)
  - Gastrointestinal disorder [Recovering/Resolving]
  - Gastroenteritis [Recovering/Resolving]
  - Metabolic acidosis [Recovered/Resolved]
